FAERS Safety Report 4440711-5 (Version None)
Quarter: 2004Q3

REPORT INFORMATION
  Report Type: 
  Country: None (occurrence: None)
  Receive Date: 20040728
  Receipt Date: 20040311
  Transmission Date: 20050211
  Serious: No
  Sender: FDA-Public Use
  Company Number: USA040361837

PATIENT
  Age: 11 Year
  Sex: Male

DRUGS (2)
  1. STRATTERA [Suspect]
     Indication: ATTENTION DEFICIT/HYPERACTIVITY DISORDER
     Dosage: 35 MG
     Dates: start: 20031201
  2. RITALIN [Concomitant]

REACTIONS (4)
  - ABNORMAL BEHAVIOUR [None]
  - CONVERSION DISORDER [None]
  - CRYING [None]
  - FEAR [None]
